FAERS Safety Report 9294120 (Version 2)
Quarter: 2013Q3

REPORT INFORMATION
  Report Type: Spontaneous
  Country: US (occurrence: US)
  Receive Date: 20130516
  Receipt Date: 20130711
  Transmission Date: 20140515
  Serious: No
  Sender: FDA-Public Use
  Company Number: US-PFIZER INC-2013150945

PATIENT
  Sex: Male

DRUGS (1)
  1. CHANTIX [Suspect]
     Dosage: UNK
     Dates: start: 20130513

REACTIONS (4)
  - Nervousness [Unknown]
  - Fatigue [Unknown]
  - Sensory disturbance [Unknown]
  - Feeling abnormal [Unknown]
